FAERS Safety Report 5225886-2 (Version None)
Quarter: 2007Q1

REPORT INFORMATION
  Report Type: 
  Country: None (occurrence: None)
  Receive Date: 20070130
  Receipt Date: 20070130
  Transmission Date: 20070707
  Serious: Yes (Hospitalization, Other)
  Sender: FDA-Public Use
  Company Number: None

PATIENT
  Age: 22 Year
  Sex: Male
  Weight: 58.0604 kg

DRUGS (1)
  1. LARIAM [Suspect]
     Indication: MALARIA PROPHYLAXIS
     Dosage: 250MG  ONCE A WEEK PO (2 DOSES ONLY)
     Route: 048
     Dates: start: 20061221, end: 20061228

REACTIONS (11)
  - ANXIETY [None]
  - CHILLS [None]
  - DEPRESSION [None]
  - FEELING ABNORMAL [None]
  - HEART RATE INCREASED [None]
  - INSOMNIA [None]
  - MALAISE [None]
  - NAUSEA [None]
  - ORAL INTAKE REDUCED [None]
  - PALPITATIONS [None]
  - VOMITING [None]
